FAERS Safety Report 4902723-4 (Version None)
Quarter: 2006Q1

REPORT INFORMATION
  Report Type: 
  Country: None (occurrence: None)
  Receive Date: 20060207
  Receipt Date: 20000726
  Transmission Date: 20060701
  Serious: Yes (Hospitalization, Other)
  Sender: FDA-Public Use
  Company Number: ZA-2000-BP-01249

PATIENT
  Sex: Male

DRUGS (7)
  1. VIRAMUNE [Suspect]
     Indication: ACQUIRED IMMUNODEFICIENCY SYNDROME
     Route: 015
     Dates: start: 20000524, end: 20000524
  2. ZIDOVUDINE [Concomitant]
     Indication: HIV INFECTION
     Route: 015
     Dates: start: 20000501, end: 20000524
  3. DEXTROSE 5% (MATERNAL) [Concomitant]
     Indication: FOETAL DISTRESS SYNDROME
     Route: 015
     Dates: start: 20000524, end: 20000524
  4. DEXTROSE 20% [Concomitant]
     Indication: FOETAL DISTRESS SYNDROME
     Dates: start: 20000524, end: 20000524
  5. SODIUM BICARBONATE [Concomitant]
     Indication: FOETAL DISTRESS SYNDROME
     Dates: start: 20000524, end: 20000524
  6. AMPICILLIN SODIUM [Concomitant]
     Dates: start: 20000525, end: 20000531
  7. TICE BCG [Concomitant]
     Indication: IMMUNISATION
     Route: 023
     Dates: start: 20000525, end: 20000525

REACTIONS (7)
  - APGAR SCORE LOW [None]
  - DRUG EXPOSURE DURING PREGNANCY [None]
  - FOETAL DISTRESS SYNDROME [None]
  - FOETAL HEART RATE DECREASED [None]
  - NEONATAL ASPIRATION [None]
  - NEUTROPENIA [None]
  - PREMATURE SEPARATION OF PLACENTA [None]
